FAERS Safety Report 13378923 (Version 1)
Quarter: 2017Q1

REPORT INFORMATION
  Report Type: Spontaneous
  Country: IN (occurrence: IN)
  Receive Date: 20170328
  Receipt Date: 20170328
  Transmission Date: 20170429
  Serious: Yes (Death, Other)
  Sender: FDA-Public Use
  Company Number: IN-OTSUKA-2017_007202

PATIENT
  Age: 79 Year
  Sex: Male

DRUGS (7)
  1. PANTOPRAZOLE SODIUM. [Concomitant]
     Active Substance: PANTOPRAZOLE SODIUM
     Indication: PRODUCT USED FOR UNKNOWN INDICATION
     Dosage: 40 MG, 1 IN 1 DAY
     Route: 065
  2. GRANISET [Concomitant]
     Indication: PRODUCT USED FOR UNKNOWN INDICATION
     Dosage: 1 MG, 3 IN 1 DAY
     Route: 065
     Dates: start: 20151129
  3. LEVOFLOX [Concomitant]
     Active Substance: LEVOFLOXACIN
     Indication: PRODUCT USED FOR UNKNOWN INDICATION
     Dosage: 500MG (MORNING) FOR 7 DAYS, 1 IN 1 DAY
     Route: 065
  4. DECITABINE. [Suspect]
     Active Substance: DECITABINE
     Dosage: CYCLE 5
     Route: 042
     Dates: start: 20151124
  5. DUPHALAC [Concomitant]
     Active Substance: LACTULOSE
     Indication: CONSTIPATION
     Dosage: 15 ML
     Route: 065
  6. FORCAN [Concomitant]
     Indication: PRODUCT USED FOR UNKNOWN INDICATION
     Dosage: 150 MG, 1 IN 1 DAY
     Route: 065
  7. DECITABINE. [Suspect]
     Active Substance: DECITABINE
     Indication: MYELODYSPLASTIC SYNDROME
     Dosage: CYCLE 1 CYCLE 1
     Route: 042
     Dates: start: 20150724, end: 20150728

REACTIONS (4)
  - Bronchiolitis [Unknown]
  - Neoplasm malignant [Fatal]
  - Hyponatraemia [Unknown]
  - Cytopenia [Recovered/Resolved]
